FAERS Safety Report 17354686 (Version 11)
Quarter: 2021Q3

REPORT INFORMATION
  Report Type: Report from Study
  Country: None (occurrence: CO)
  Receive Date: 20200131
  Receipt Date: 20210726
  Transmission Date: 20211014
  Serious: Yes (Other)
  Sender: FDA-Public Use
  Company Number: CO-ABBVIE-19K-036-2819417-00

PATIENT
  Age: 57 Year
  Sex: Male
  Weight: 86 kg

DRUGS (8)
  1. FOLIC ACID. [Concomitant]
     Active Substance: FOLIC ACID
     Indication: PRODUCT USED FOR UNKNOWN INDICATION
     Route: 048
  2. HUMIRA [Suspect]
     Active Substance: ADALIMUMAB
     Route: 058
     Dates: end: 20210307
  3. VITAMIN B12 [Concomitant]
     Active Substance: CYANOCOBALAMIN
     Indication: PRODUCT USED FOR UNKNOWN INDICATION
     Route: 048
  4. CENTRUM [Concomitant]
     Active Substance: VITAMINS
     Indication: PRODUCT USED FOR UNKNOWN INDICATION
     Route: 048
  5. FERROUS SULFATE. [Concomitant]
     Active Substance: FERROUS SULFATE
     Indication: PRODUCT USED FOR UNKNOWN INDICATION
     Route: 048
  6. HUMIRA [Suspect]
     Active Substance: ADALIMUMAB
     Indication: ANKYLOSING SPONDYLITIS
     Route: 058
     Dates: end: 20190401
  7. HUMIRA [Suspect]
     Active Substance: ADALIMUMAB
     Indication: ANKYLOSING SPONDYLITIS
     Route: 058
     Dates: start: 20110317
  8. HUMIRA [Suspect]
     Active Substance: ADALIMUMAB
     Dosage: CITRATE FREE
     Route: 058
     Dates: start: 2021

REACTIONS (26)
  - Musculoskeletal pain [Not Recovered/Not Resolved]
  - Uveitis [Unknown]
  - Wound [Unknown]
  - Nasal congestion [Recovering/Resolving]
  - Inflammation [Not Recovered/Not Resolved]
  - Surgery [Recovering/Resolving]
  - Rhinorrhoea [Recovering/Resolving]
  - Pain [Unknown]
  - Sneezing [Recovering/Resolving]
  - Weight increased [Not Recovered/Not Resolved]
  - Procedural pain [Not Recovered/Not Resolved]
  - Muscular weakness [Not Recovered/Not Resolved]
  - Wound haemorrhage [Recovering/Resolving]
  - Varicose vein [Unknown]
  - Foot deformity [Unknown]
  - Headache [Not Recovered/Not Resolved]
  - Influenza like illness [Recovering/Resolving]
  - Ankylosing spondylitis [Not Recovered/Not Resolved]
  - Dry skin [Not Recovered/Not Resolved]
  - Osteoporosis [Not Recovered/Not Resolved]
  - Osteoarthritis [Not Recovered/Not Resolved]
  - Joint stiffness [Not Recovered/Not Resolved]
  - Overweight [Recovering/Resolving]
  - Gait disturbance [Recovering/Resolving]
  - Arthralgia [Not Recovered/Not Resolved]
  - Pain in extremity [Not Recovered/Not Resolved]

NARRATIVE: CASE EVENT DATE: 20120531
